FAERS Safety Report 5737334-4 (Version None)
Quarter: 2008Q2

REPORT INFORMATION
  Report Type: 
  Country: None (occurrence: None)
  Receive Date: 20080514
  Receipt Date: 20080509
  Transmission Date: 20081010
  Serious: Yes (Hospitalization)
  Sender: FDA-Public Use
  Company Number: US-BRISTOL-MYERS SQUIBB COMPANY-14186621

PATIENT
  Age: 82 Year
  Sex: Male

DRUGS (5)
  1. TAXOL [Suspect]
     Indication: BLADDER CANCER RECURRENT
     Route: 042
     Dates: start: 20080415
  2. CARBOPLATIN [Suspect]
     Indication: BLADDER CANCER RECURRENT
     Route: 042
     Dates: start: 20080415
  3. WARFARIN SODIUM [Suspect]
     Indication: PROPHYLAXIS
     Route: 048
     Dates: start: 20060601, end: 20080121
  4. LASIX [Concomitant]
     Indication: HYPERTENSION
     Route: 048
     Dates: start: 20080208, end: 20080421
  5. POTASSIUM CHLORIDE [Concomitant]
     Indication: SUPPLEMENTATION THERAPY
     Route: 048
     Dates: start: 20080209, end: 20080421

REACTIONS (2)
  - HYPOVOLAEMIA [None]
  - RENAL FAILURE ACUTE [None]
